FAERS Safety Report 24034611 (Version 3)
Quarter: 2024Q3

REPORT INFORMATION
  Report Type: Report from Study
  Country: AR (occurrence: AR)
  Receive Date: 20240701
  Receipt Date: 20240710
  Transmission Date: 20241016
  Serious: No
  Sender: ROCHE
  Company Number: AR-ROCHE-3567154

PATIENT
  Age: 41 Year
  Sex: Male
  Weight: 77.0 kg

DRUGS (1)
  1. EVRYSDI [Suspect]
     Active Substance: RISDIPLAM
     Indication: Spinal muscular atrophy
     Route: 048
     Dates: start: 20230315

REACTIONS (2)
  - Paternal exposure during pregnancy [Unknown]
  - Paternal exposure before pregnancy [Unknown]
